FAERS Safety Report 7648403-6 (Version None)
Quarter: 2011Q3

REPORT INFORMATION
  Report Type: 
  Country: None (occurrence: None)
  Receive Date: 20110801
  Receipt Date: 20110727
  Transmission Date: 20111222
  Serious: Yes (Other)
  Sender: FDA-Public Use
  Company Number: US-PFIZER INC-2011134255

PATIENT
  Sex: Male
  Weight: 104.31 kg

DRUGS (3)
  1. PLAVIX [Concomitant]
     Indication: ANTICOAGULANT THERAPY
     Dosage: UNK
  2. ADVIL LIQUI-GELS [Suspect]
     Indication: ARTHRALGIA
     Dosage: 2 TABLETS DAILY
     Route: 048
     Dates: start: 20110615
  3. ACETYLSALICYLIC ACID [Concomitant]
     Indication: ANTICOAGULANT THERAPY
     Dosage: UNK

REACTIONS (1)
  - BLOOD GLUCOSE INCREASED [None]
